FAERS Safety Report 7978528-7 (Version None)
Quarter: 2011Q4

REPORT INFORMATION
  Report Type: 
  Country: None (occurrence: None)
  Receive Date: 20111214
  Receipt Date: 20111202
  Transmission Date: 20120403
  Serious: Yes (Hospitalization)
  Sender: FDA-Public Use
  Company Number: US-JNJFOC-20111202038

PATIENT
  Sex: Male
  Weight: 94.8 kg

DRUGS (6)
  1. DILTIAZEM HCL [Concomitant]
     Indication: HYPERTENSION
     Route: 048
     Dates: start: 20010101
  2. REMICADE [Suspect]
     Indication: RHEUMATOID ARTHRITIS
     Route: 042
     Dates: start: 20060101
  3. BENAZEPRIL HYDROCHLORIDE [Concomitant]
     Indication: HYPERTENSION
     Route: 048
     Dates: start: 20010101
  4. GABAPENTIN [Concomitant]
     Indication: ARTHRALGIA
     Route: 048
     Dates: start: 20000101
  5. OMEPRAZOLE [Concomitant]
     Indication: GASTROOESOPHAGEAL REFLUX DISEASE
     Route: 048
     Dates: start: 19990101
  6. GABAPENTIN [Concomitant]
     Indication: BURNING SENSATION
     Route: 048
     Dates: start: 20000101

REACTIONS (6)
  - RENAL DISORDER [None]
  - ADVERSE EVENT [None]
  - BLOOD CHOLESTEROL INCREASED [None]
  - HEAT EXHAUSTION [None]
  - DISORIENTATION [None]
  - SPEECH DISORDER [None]
